FAERS Safety Report 24137749 (Version 1)
Quarter: 2024Q3

REPORT INFORMATION
  Report Type: Spontaneous
  Country: US (occurrence: US)
  Receive Date: 20240725
  Receipt Date: 20240725
  Transmission Date: 20241017
  Serious: Yes (Hospitalization)
  Sender: MYLAN
  Company Number: US-MYLANLABS-2024M1067250

PATIENT
  Age: 42 Year
  Sex: Female

DRUGS (2)
  1. DILANTIN [Interacting]
     Active Substance: PHENYTOIN
     Indication: Product used for unknown indication
     Dosage: UNK
     Route: 065
  2. INGREZZA [Interacting]
     Active Substance: VALBENAZINE
     Indication: Product used for unknown indication
     Dosage: 80 MILLIGRAM
     Route: 065
     Dates: start: 20210628

REACTIONS (4)
  - Mental disorder [Unknown]
  - Hernia [Unknown]
  - Colectomy [Unknown]
  - Labelled drug-drug interaction issue [Unknown]
